FAERS Safety Report 8584775-6 (Version None)
Quarter: 2012Q3

REPORT INFORMATION
  Report Type: 
  Country: None (occurrence: None)
  Receive Date: 20120810
  Receipt Date: 20120802
  Transmission Date: 20120928
  Serious: Yes (Hospitalization)
  Sender: FDA-Public Use
  Company Number: US-VIROPHARMA INCORPORATED-20120604CINRY3018

PATIENT
  Sex: Female
  Weight: 73.185 kg

DRUGS (6)
  1. VICODIN [Concomitant]
     Indication: PAIN
     Route: 050
  2. CINRYZE [Suspect]
     Indication: HEREDITARY ANGIOEDEMA
     Dates: start: 20090101, end: 20120101
  3. CINRYZE [Suspect]
     Dates: start: 20120101
  4. NEXIUM [Concomitant]
     Indication: PRODUCT USED FOR UNKNOWN INDICATION
     Route: 048
  5. XANAX [Concomitant]
     Indication: ANXIETY
     Route: 048
  6. MULTI-VITAMINS [Concomitant]
     Indication: PREGNANCY
     Dosage: UNKNOWN
     Route: 048

REACTIONS (15)
  - HYPOTENSION [None]
  - THERAPY REGIMEN CHANGED [None]
  - MATERNAL EXPOSURE DURING PREGNANCY [None]
  - ARTHROPOD BITE [None]
  - PYREXIA [None]
  - HEADACHE [None]
  - HEREDITARY ANGIOEDEMA [None]
  - UPPER RESPIRATORY TRACT INFECTION [None]
  - INFUSION RELATED REACTION [None]
  - PARAESTHESIA [None]
  - VOMITING [None]
  - URINARY TRACT INFECTION [None]
  - INAPPROPRIATE SCHEDULE OF DRUG ADMINISTRATION [None]
  - DRUG DOSE OMISSION [None]
  - DEHYDRATION [None]
